FAERS Safety Report 7921754-3 (Version None)
Quarter: 2011Q4

REPORT INFORMATION
  Report Type: 
  Country: None (occurrence: None)
  Receive Date: 20111117
  Receipt Date: 20111109
  Transmission Date: 20120403
  Serious: Yes (Disabling)
  Sender: FDA-Public Use
  Company Number: JP-GLAXOSMITHKLINE-B0728534A

PATIENT
  Sex: Male
  Weight: 43.9 kg

DRUGS (4)
  1. KYTRIL [Suspect]
     Indication: SMALL CELL LUNG CANCER STAGE UNSPECIFIED
     Dosage: 3MG PER DAY
     Route: 042
     Dates: start: 20110502, end: 20110528
  2. HYCAMTIN [Suspect]
     Indication: SMALL CELL LUNG CANCER STAGE UNSPECIFIED
     Dosage: 1.4MG PER DAY
     Route: 042
     Dates: start: 20110502, end: 20110528
  3. VEPESID [Concomitant]
     Dosage: 80MGM2 PER DAY
     Route: 042
     Dates: start: 20110209, end: 20110311
  4. CARBOPLATIN [Concomitant]
     Route: 042
     Dates: start: 20110209, end: 20110311

REACTIONS (1)
  - RENAL INFARCT [None]
